FAERS Safety Report 5282442-8 (Version None)
Quarter: 2007Q1

REPORT INFORMATION
  Report Type: 
  Country: None (occurrence: None)
  Receive Date: 20061226
  Receipt Date: 20061006
  Transmission Date: 20070707
  Serious: No
  Sender: FDA-Public Use
  Company Number: PHEH2006US12626

PATIENT
  Age: 70 Year
  Sex: Female

DRUGS (1)
  1. ENABLEX [Suspect]
     Indication: POLLAKIURIA
     Dosage: 15 MG, QD
     Dates: start: 20061006, end: 20061006

REACTIONS (4)
  - DIZZINESS [None]
  - DRY EYE [None]
  - DRY MOUTH [None]
  - NAUSEA [None]
